FAERS Safety Report 8791440 (Version 1)
Quarter: 2012Q4

REPORT INFORMATION
  Report Type: Spontaneous
  Country: US (occurrence: None)
  Receive Date: 20120914
  Receipt Date: 20120914
  Transmission Date: 20130627
  Serious: Yes (Other)
  Sender: FDA-Public Use
  Company Number: None

PATIENT
  Age: 63 Year
  Sex: Female
  Weight: 65.77 kg

DRUGS (1)
  1. SORE NO MORE [Suspect]
     Indication: ARTHRALGIA
     Dosage: apply gel up to 3x daily top
     Route: 061
     Dates: start: 20120831, end: 20120901

REACTIONS (1)
  - Blister [None]
